FAERS Safety Report 21261618 (Version 1)
Quarter: 2022Q3

REPORT INFORMATION
  Report Type: Report from Study
  Country: DE (occurrence: DE)
  Receive Date: 20220827
  Receipt Date: 20220827
  Transmission Date: 20221027
  Serious: Yes (Death, Other)
  Sender: FDA-Public Use
  Company Number: DE-NOVARTISPH-NVSC2022DE192409

PATIENT
  Sex: Female

DRUGS (19)
  1. UNSPECIFIED INGREDIENT [Suspect]
     Active Substance: UNSPECIFIED INGREDIENT
     Indication: Product used for unknown indication
     Route: 065
  2. METHOTREXATE [Suspect]
     Active Substance: METHOTREXATE
     Indication: Rheumatoid arthritis
     Dosage: 10 MG
     Route: 065
     Dates: start: 20120213
  3. METHOTREXATE [Suspect]
     Active Substance: METHOTREXATE
     Dosage: 10 MG
     Route: 065
     Dates: start: 20120508
  4. METHOTREXATE [Suspect]
     Active Substance: METHOTREXATE
     Dosage: 10 MG
     Route: 065
     Dates: start: 20120822
  5. METHOTREXATE [Suspect]
     Active Substance: METHOTREXATE
     Dosage: 10 MG
     Route: 065
     Dates: start: 20130219
  6. METHOTREXATE [Suspect]
     Active Substance: METHOTREXATE
     Dosage: 10 MG
     Route: 065
     Dates: start: 20130812
  7. METHOTREXATE [Suspect]
     Active Substance: METHOTREXATE
     Dosage: 10 MG
     Route: 065
     Dates: start: 20140210
  8. METHOTREXATE [Suspect]
     Active Substance: METHOTREXATE
     Dosage: 10 MG
     Route: 065
     Dates: start: 20140825
  9. METHOTREXATE [Suspect]
     Active Substance: METHOTREXATE
     Dosage: 15 MG
     Route: 065
     Dates: start: 20150223
  10. METHOTREXATE [Suspect]
     Active Substance: METHOTREXATE
     Dosage: 15 MG
     Route: 065
     Dates: start: 20150824
  11. HYDROXYCHLOROQUINE [Suspect]
     Active Substance: HYDROXYCHLOROQUINE
     Indication: Rheumatoid arthritis
     Dosage: 200 MG
     Route: 065
     Dates: start: 20120213
  12. HYDROXYCHLOROQUINE [Suspect]
     Active Substance: HYDROXYCHLOROQUINE
     Dosage: 200 MG
     Route: 065
     Dates: start: 20120508
  13. HYDROXYCHLOROQUINE [Suspect]
     Active Substance: HYDROXYCHLOROQUINE
     Dosage: 200 MG
     Route: 065
     Dates: start: 20120822
  14. HYDROXYCHLOROQUINE [Suspect]
     Active Substance: HYDROXYCHLOROQUINE
     Dosage: 200 MG
     Route: 065
     Dates: start: 20130219
  15. HYDROXYCHLOROQUINE [Suspect]
     Active Substance: HYDROXYCHLOROQUINE
     Dosage: 200 MG
     Route: 065
     Dates: start: 20130812
  16. HYDROXYCHLOROQUINE [Suspect]
     Active Substance: HYDROXYCHLOROQUINE
     Dosage: 200 MG
     Route: 065
     Dates: start: 20140210
  17. HYDROXYCHLOROQUINE [Suspect]
     Active Substance: HYDROXYCHLOROQUINE
     Dosage: 200 MG
     Route: 065
     Dates: start: 20140825
  18. HYDROXYCHLOROQUINE [Suspect]
     Active Substance: HYDROXYCHLOROQUINE
     Dosage: 200 MG
     Route: 065
     Dates: start: 20150223
  19. HYDROXYCHLOROQUINE [Suspect]
     Active Substance: HYDROXYCHLOROQUINE
     Dosage: 200 MG
     Route: 065
     Dates: start: 20150824

REACTIONS (2)
  - Diffuse large B-cell lymphoma [Fatal]
  - Pneumonia [Unknown]

NARRATIVE: CASE EVENT DATE: 20180401
